FAERS Safety Report 19707564 (Version 3)
Quarter: 2022Q2

REPORT INFORMATION
  Report Type: Spontaneous
  Country: US (occurrence: US)
  Receive Date: 20210817
  Receipt Date: 20220404
  Transmission Date: 20220721
  Serious: Yes (Other)
  Sender: FDA-Public Use
  Company Number: US-SANOFI-00719755

PATIENT
  Age: 40 Year
  Sex: Female

DRUGS (1)
  1. ZANTAC [Suspect]
     Active Substance: RANITIDINE HYDROCHLORIDE
     Indication: Gastrooesophageal reflux disease
     Dosage: 150 MG, BID
     Dates: start: 20190705, end: 20190919

REACTIONS (8)
  - Oesophageal carcinoma [Unknown]
  - Throat cancer [Unknown]
  - Throat lesion [Unknown]
  - Dysstasia [Unknown]
  - Dyspnoea [Unknown]
  - Eating disorder [Unknown]
  - Insomnia [Unknown]
  - Sensation of foreign body [Unknown]
